FAERS Safety Report 14770527 (Version 2)
Quarter: 2018Q2

REPORT INFORMATION
  Report Type: Spontaneous
  Country: DE (occurrence: DE)
  Receive Date: 20180417
  Receipt Date: 20180523
  Transmission Date: 20180711
  Serious: Yes (Death)
  Sender: FDA-Public Use
  Company Number: DE-PFIZER INC-2018155484

PATIENT
  Age: 82 Year
  Sex: Female
  Weight: 120 kg

DRUGS (19)
  1. CABERGOLINE. [Suspect]
     Active Substance: CABERGOLINE
     Dosage: UNK, WEEKLY
     Route: 051
     Dates: start: 20180114
  2. BISOPROLOL [Concomitant]
     Active Substance: BISOPROLOL
     Dosage: 3 MG, 1X/DAY
  3. PANTOPRAZOL TAD [Concomitant]
     Active Substance: PANTOPRAZOLE SODIUM
     Dosage: 40 MG, 1X/DAY
  4. RELVAR ELLIPTA [Concomitant]
     Active Substance: FLUTICASONE FUROATE\VILANTEROL TRIFENATATE
     Dosage: 180 UG/22 UG
  5. L-THYROX HEXAL [Concomitant]
     Active Substance: LEVOTHYROXINE SODIUM
     Dosage: 100 UG, 1X/DAY
  6. IBUPROFEN. [Concomitant]
     Active Substance: IBUPROFEN
     Dosage: UNK, AS NEEDED
     Route: 048
  7. HYLO-COMOD [Concomitant]
     Active Substance: HYALURONATE SODIUM
     Dosage: UNK
  8. AMITRIPTYLIN [Concomitant]
     Active Substance: AMITRIPTYLINE
     Dosage: 25 MG, 1X/DAY
     Route: 048
  9. AZITHROMYCIN EBERTH [Interacting]
     Active Substance: AZITHROMYCIN DIHYDRATE
     Indication: PNEUMONIA
     Dosage: UNK
     Route: 042
     Dates: start: 20180114, end: 20180118
  10. XARELTO [Concomitant]
     Active Substance: RIVAROXABAN
     Dosage: 20 MG, 1X/DAY
     Dates: start: 201505
  11. AMITRIPTYLIN NEURAXPHARM [Concomitant]
     Active Substance: AMITRIPTYLINE
     Dosage: UNK
  12. RAMIPRIL. [Concomitant]
     Active Substance: RAMIPRIL
     Dosage: 2.5 MG, 1X/DAY
     Dates: start: 201702
  13. OPTREX ACTIMIST 2IN1 EYE SPRAY FOR DRY + IRRI [Concomitant]
     Dosage: UNK
  14. PROMETHAZINE [Concomitant]
     Active Substance: PROMETHAZINE\PROMETHAZINE HYDROCHLORIDE
     Dosage: 25 MG, 1X/DAY
  15. FUROSEMID RATIOPHARM /00032601/ [Concomitant]
     Active Substance: FUROSEMIDE
     Dosage: UNK
  16. EMSELEX /01760401/ [Concomitant]
     Active Substance: DARIFENACIN HYDROBROMIDE
     Dosage: 3 MG, 1X/DAY
  17. SIMVASTATIN RATIOPHARM [Concomitant]
     Active Substance: SIMVASTATIN
     Dosage: 20 MG, 1X/DAY
  18. ATROVENT [Concomitant]
     Active Substance: IPRATROPIUM BROMIDE
     Dosage: UNK, AS NEEDED
     Route: 055
  19. UNACID /00917901/ [Concomitant]
     Active Substance: AMPICILLIN SODIUM\SULBACTAM SODIUM
     Indication: PNEUMONIA
     Dosage: UNK
     Route: 042

REACTIONS (5)
  - Drug interaction [Unknown]
  - Cardiopulmonary failure [Fatal]
  - Cardiac failure [Fatal]
  - Arrhythmia [Fatal]
  - Bundle branch block left [Unknown]

NARRATIVE: CASE EVENT DATE: 20180115
